FAERS Safety Report 4876625-6 (Version None)
Quarter: 2005Q4

REPORT INFORMATION
  Report Type: 
  Country: None (occurrence: None)
  Receive Date: 20051206
  Receipt Date: 20051012
  Transmission Date: 20060501
  Serious: Yes (Hospitalization)
  Sender: FDA-Public Use
  Company Number: USA0510110719

PATIENT
  Age: 95 Year
  Sex: Female

DRUGS (3)
  1. CYMBALTA [Suspect]
     Indication: DEPRESSION
     Dosage: 30 MG
  2. ASPIRIN [Concomitant]
  3. PLENDIL [Concomitant]

REACTIONS (2)
  - MALAISE [None]
  - NAUSEA [None]
